FAERS Safety Report 7554733-9 (Version None)
Quarter: 2011Q2

REPORT INFORMATION
  Report Type: 
  Country: None (occurrence: None)
  Receive Date: 20110617
  Receipt Date: 20110609
  Transmission Date: 20111010
  Serious: Yes (Hospitalization)
  Sender: FDA-Public Use
  Company Number: JP-ASTRAZENECA-2011SE35911

PATIENT
  Age: 71 Year
  Sex: Female

DRUGS (8)
  1. MULTICENTRUM [Concomitant]
     Route: 065
  2. CANDESARTAN CILEXETIL AND HYDROCHLOROTHIAZIDE [Suspect]
     Indication: HYPERTENSION
     Route: 048
     Dates: start: 20100601, end: 20101213
  3. MODURETIC 5-50 [Suspect]
     Indication: HYPERTENSION
     Dosage: 5 MG + 50 MG DAILY
     Route: 048
     Dates: start: 20100601, end: 20101213
  4. ADALAT [Concomitant]
     Route: 065
  5. GLUCOPHAGE [Suspect]
     Indication: TYPE 2 DIABETES MELLITUS
     Route: 048
     Dates: start: 19920101, end: 20101220
  6. CARDURA [Concomitant]
     Route: 065
  7. FULCRO [Concomitant]
     Route: 065
  8. REPAGLINIDE [Concomitant]
     Route: 065

REACTIONS (3)
  - HYPERKALAEMIA [None]
  - METABOLIC ACIDOSIS [None]
  - RENAL FAILURE ACUTE [None]
